FAERS Safety Report 24322553 (Version 1)
Quarter: 2024Q3

REPORT INFORMATION
  Report Type: Spontaneous
  Country: PL (occurrence: PL)
  Receive Date: 20240916
  Receipt Date: 20240916
  Transmission Date: 20241017
  Serious: Yes (Other)
  Sender: LEO PHARM
  Company Number: None

PATIENT
  Age: 33 Year
  Sex: Male

DRUGS (2)
  1. PROTOPIC [Suspect]
     Active Substance: TACROLIMUS
     Indication: Alopecia areata
     Dosage: VERY THIN LAYER AT NIGHT FOR ABOUT 1 YEAR (NOT ALWAYS REGULARLY).? 0.1%
     Dates: start: 20171228
  2. PROTOPIC [Suspect]
     Active Substance: TACROLIMUS
     Indication: Vitiligo
     Dosage: VERY THIN LAYER AT NIGHT FOR ABOUT 1 YEAR (NOT ALWAYS REGULARLY).? 0.1%
     Dates: start: 20171228

REACTIONS (4)
  - Off label use [Unknown]
  - Chordoma [Unknown]
  - Bone lesion [Unknown]
  - Paraesthesia [Unknown]

NARRATIVE: CASE EVENT DATE: 20190601
